FAERS Safety Report 19950647 (Version 5)
Quarter: 2022Q2

REPORT INFORMATION
  Report Type: Spontaneous
  Country: US (occurrence: US)
  Receive Date: 20211013
  Receipt Date: 20220629
  Transmission Date: 20220720
  Serious: Yes (Hospitalization, Other)
  Sender: FDA-Public Use
  Company Number: US-JNJFOC-20211010049

PATIENT
  Age: 79 Year
  Sex: Male
  Weight: 83.536 kg

DRUGS (9)
  1. XARELTO [Suspect]
     Active Substance: RIVAROXABAN
     Indication: Product used for unknown indication
     Route: 048
     Dates: start: 2020
  2. XARELTO [Suspect]
     Active Substance: RIVAROXABAN
     Route: 048
  3. XARELTO [Suspect]
     Active Substance: RIVAROXABAN
     Route: 048
     Dates: start: 202105
  4. XARELTO [Suspect]
     Active Substance: RIVAROXABAN
     Route: 048
     Dates: start: 202103, end: 20210311
  5. XARELTO [Suspect]
     Active Substance: RIVAROXABAN
     Route: 048
     Dates: start: 20210410, end: 20220129
  6. XARELTO [Suspect]
     Active Substance: RIVAROXABAN
     Route: 048
     Dates: start: 201503
  7. XARELTO [Suspect]
     Active Substance: RIVAROXABAN
     Dosage: GTIN NUMBER 00350458580303?SERIAL NUMBER 10005176286
     Route: 048
     Dates: start: 20140129
  8. COVID-19 VACCINE [Concomitant]
     Dates: start: 20210219
  9. IRON [Concomitant]
     Active Substance: IRON
     Indication: Product used for unknown indication

REACTIONS (5)
  - Coma [Unknown]
  - Thrombosis [Recovered/Resolved]
  - Loss of consciousness [Unknown]
  - Gastric ulcer haemorrhage [Recovering/Resolving]
  - Gait disturbance [Unknown]

NARRATIVE: CASE EVENT DATE: 20210311
